FAERS Safety Report 14957572 (Version 1)
Quarter: 2018Q2

REPORT INFORMATION
  Report Type: Spontaneous
  Country: JP (occurrence: JP)
  Receive Date: 20180531
  Receipt Date: 20180531
  Transmission Date: 20180711
  Serious: Yes (Other)
  Sender: FDA-Public Use
  Company Number: JP-JNJFOC-20180536108

PATIENT
  Sex: Male

DRUGS (2)
  1. ZYTIGA [Suspect]
     Active Substance: ABIRATERONE ACETATE
     Indication: HORMONE-REFRACTORY PROSTATE CANCER
     Route: 048
  2. ZYTIGA [Suspect]
     Active Substance: ABIRATERONE ACETATE
     Indication: HORMONE-REFRACTORY PROSTATE CANCER
     Route: 048

REACTIONS (11)
  - Hyperglycaemia [Unknown]
  - Headache [Unknown]
  - Hypokalaemia [Unknown]
  - Gastrointestinal disorder [Unknown]
  - Platelet count decreased [Unknown]
  - Oedema [Unknown]
  - Hypertension [Unknown]
  - Hepatic function abnormal [Unknown]
  - Chest pain [Unknown]
  - Diarrhoea [Unknown]
  - Amylase increased [Unknown]
